FAERS Safety Report 16699402 (Version 2)
Quarter: 2019Q3

REPORT INFORMATION
  Report Type: Report from Study
  Country: US (occurrence: US)
  Receive Date: 20190813
  Receipt Date: 20190820
  Transmission Date: 20191004
  Serious: Yes (Hospitalization)
  Sender: FDA-Public Use
  Company Number: US-PFIZER INC-2019340304

PATIENT
  Age: 74 Year
  Sex: Female

DRUGS (16)
  1. INOTUZUMAB OZOGAMICIN [Suspect]
     Active Substance: INOTUZUMAB OZOGAMICIN
     Indication: ACUTE LYMPHOCYTIC LEUKAEMIA
     Dosage: 0.3 MG/M2, REGIMEN A: OVER 1 HOUR ON DAYS 2 AND 8 OF CYCLES 1 AND 3 (APPROXIMATE)
     Route: 042
     Dates: start: 20190131
  2. CYTARABINE. [Suspect]
     Active Substance: CYTARABINE
     Dosage: 500 MG/M2, OVER 3 HOURS TWICE A DAY X 4 DOSES ON DAYS 2 AND 3, REGIMEN B: CYCLES 2, 4, 8, 10
     Route: 042
  3. METHOTREXATE SODIUM. [Suspect]
     Active Substance: METHOTREXATE SODIUM
     Dosage: 200 MG/M2, CONTINUOUS INFUSION OVER 22 HOURS ON DAY 1,REGIMEN B: CYCLES 2, 4, 8, 10
     Route: 042
  4. RITUXIMAB. [Suspect]
     Active Substance: RITUXIMAB
     Dosage: 375 MG/M2,  REGIMEN A: ON DAY 2 AND DAY 8 OF CYCLES 1 AND 3
     Route: 042
  5. MESNA. [Suspect]
     Active Substance: MESNA
     Dosage: 300 MG/M2, DAILY OVER 24 HOURS FOR 3 DAYS ON DAYS 1-3, REGIMEN A: CYCLES 1, 3, 7, 9
     Route: 042
  6. METHOTREXATE SODIUM. [Suspect]
     Active Substance: METHOTREXATE SODIUM
     Dosage: 50 MG/M2, OVER 2HRS ON DAY 1 THEN, REGIMEN B: CYCLES 2, 4, 8, 10
     Route: 042
  7. VINCRISTINE SULFATE. [Suspect]
     Active Substance: VINCRISTINE SULFATE
     Dosage: 2 MG, DAY 1 AND DAY 8 (APPROXIMATE), REGIMEN A: CYCLES 1, 3, 7, 9
     Route: 042
  8. CYCLOPHOSPHAMIDE. [Suspect]
     Active Substance: CYCLOPHOSPHAMIDE
     Dosage: 150 MG/M2, OVER 3 HOURS TWICE A DAY ON DAYS 1-3, REGIMEN A: CYCLES 1, 3, 7, 9
     Route: 042
  9. BLINATUMOMAB [Suspect]
     Active Substance: BLINATUMOMAB
     Dosage: 28 UG/DAY, CONTINUOUS IV DAYS 4-29 (CYCLE 5 ONLY)
     Route: 042
  10. RITUXIMAB. [Suspect]
     Active Substance: RITUXIMAB
     Dosage: 375 MG/M2, REGIMEN B: ON DAY 2 AND 8 OF CYCLES 2 AND 4
     Route: 042
  11. BLINATUMOMAB [Suspect]
     Active Substance: BLINATUMOMAB
     Dosage: 28?G/DAY, CONTINUOUS INFUSION DAYS 1-29 (CYCLES 6, 11 AND 12)
     Route: 042
  12. DEXAMETHASONE. [Suspect]
     Active Substance: DEXAMETHASONE
     Dosage: 20 MG, DAILY FOR 4 DAYS ON DAYS 1-4 AND DAYS 11-14 (APPROXIMATE), REGIMEN A: CYCLES 1, 3, 7,9
     Route: 042
  13. PEGFILGRASTIM [Suspect]
     Active Substance: PEGFILGRASTIM
     Dosage: 6 MG, REGIMEN A: SUBQ (OR FILGRASTIM 5-10 MCG/KG DAILY) ON DAY 4
     Route: 058
  14. INOTUZUMAB OZOGAMICIN [Suspect]
     Active Substance: INOTUZUMAB OZOGAMICIN
     Dosage: 0.3 MG/M2, REGIMEN B: ON DAYS 2 AND 8 OF CYCLES 2 AND 4 (APPROXIMATE)
     Route: 042
  15. PEGFILGRASTIM [Suspect]
     Active Substance: PEGFILGRASTIM
     Dosage: 6 MG, REGIMEN B: SUBQ (OR FILGRASTIM 5-10 MCG/KG DAILY)
     Route: 058
  16. BLINATUMOMAB [Suspect]
     Active Substance: BLINATUMOMAB
     Dosage: 9 UG/DAY, CONTINUOUS IV DAYS 1-4 (CYCLE 5 ONLY)
     Route: 042

REACTIONS (1)
  - Mental status changes [Recovered/Resolved]

NARRATIVE: CASE EVENT DATE: 20190713
